FAERS Safety Report 4526819-4 (Version None)
Quarter: 2004Q4

REPORT INFORMATION
  Report Type: 
  Country: None (occurrence: None)
  Receive Date: 20041213
  Receipt Date: 20041105
  Transmission Date: 20050328
  Serious: Yes (Other)
  Sender: FDA-Public Use
  Company Number: US_0412108813

PATIENT
  Sex: Female

DRUGS (2)
  1. ZYPREXA [Suspect]
     Indication: ANXIETY
     Dates: start: 19961101, end: 20040601
  2. ZYPREXA [Suspect]
     Indication: DEPRESSION
     Dates: start: 19961101, end: 20040601

REACTIONS (4)
  - HYPERGLYCAEMIA [None]
  - HYPERTENSION [None]
  - MYOCARDIAL INFARCTION [None]
  - PANCREATITIS [None]
